FAERS Safety Report 15603854 (Version 1)
Quarter: 2018Q4

REPORT INFORMATION
  Report Type: Spontaneous
  Country: US (occurrence: US)
  Receive Date: 20181109
  Receipt Date: 20181109
  Transmission Date: 20190205
  Serious: Yes (Other)
  Sender: FDA-Public Use
  Company Number: US-AMGEN-KDL444677

PATIENT
  Age: 54 Year
  Sex: Female
  Weight: 89.9 kg

DRUGS (8)
  1. INTERFERON [Concomitant]
     Active Substance: INTERFERON
     Dosage: 200 MG, QD
     Route: 048
     Dates: start: 200911
  2. PROCRIT [Suspect]
     Active Substance: ERYTHROPOIETIN
     Indication: ANAEMIA
     Dosage: 40000 IU, QWK
     Route: 058
     Dates: start: 2010
  3. ESTER-C [Concomitant]
     Active Substance: CALCIUM\VITAMINS
     Dosage: 1000 MG, QD
     Route: 048
     Dates: start: 200910
  4. RIBAVIRIN. [Concomitant]
     Active Substance: RIBAVIRIN
     Dosage: 200 MG, QD
     Route: 048
     Dates: start: 200911
  5. PANTOPRAZOLE SODIUM. [Concomitant]
     Active Substance: PANTOPRAZOLE SODIUM
     Dosage: 40 MG, QD
     Route: 048
  6. UNSPECIFIED MEDICATION [Concomitant]
     Active Substance: UNSPECIFIED INGREDIENT
     Dosage: UNK UNK, BID
     Route: 047
  7. GASTROINTESTINAL MEDICATION NOS [Concomitant]
     Dosage: UNK UNK, QD
     Route: 048
  8. CENTRUM SILVER [Concomitant]
     Active Substance: MINERALS\VITAMINS
     Dosage: UNK UNK, QD
     Route: 048

REACTIONS (8)
  - Psoriasis [Not Recovered/Not Resolved]
  - Vulvovaginal pruritus [Unknown]
  - Vulvovaginal swelling [Unknown]
  - Vulval disorder [Recovered/Resolved]
  - Nodule [Not Recovered/Not Resolved]
  - Thrombosis [Not Recovered/Not Resolved]
  - Skin ulcer [Not Recovered/Not Resolved]
  - Pruritus [Not Recovered/Not Resolved]

NARRATIVE: CASE EVENT DATE: 2010
